FAERS Safety Report 9276704 (Version 1)
Quarter: 2013Q2

REPORT INFORMATION
  Report Type: Spontaneous
  Country: FR (occurrence: FR)
  Receive Date: 20130507
  Receipt Date: 20130507
  Transmission Date: 20140414
  Serious: Yes (Death, Hospitalization, Other)
  Sender: FDA-Public Use
  Company Number: PHHY2013FR042563

PATIENT
  Age: 35 Year
  Sex: Male
  Weight: 84 kg

DRUGS (4)
  1. IMATINIB [Suspect]
     Indication: GASTROINTESTINAL STROMAL TUMOUR
     Dosage: 400 MG, UNK
  2. IMATINIB [Suspect]
     Dosage: UNK UKN, UNK
  3. SUNITINIB [Suspect]
  4. SORAFENIB [Suspect]
     Dosage: UNK UKN, UNK

REACTIONS (10)
  - Brain hypoxia [Fatal]
  - Hypoglycaemia [Unknown]
  - Agitation [Unknown]
  - Mental impairment [Unknown]
  - Subileus [Unknown]
  - Neoplasm recurrence [Unknown]
  - Abdominal mass [Unknown]
  - Pelvic mass [Unknown]
  - Gastrointestinal stromal tumour [Unknown]
  - Malignant neoplasm progression [Unknown]
